FAERS Safety Report 5685631-3 (Version None)
Quarter: 2008Q1

REPORT INFORMATION
  Report Type: 
  Country: None (occurrence: None)
  Receive Date: 20080328
  Receipt Date: 20070827
  Transmission Date: 20080703
  Serious: No
  Sender: FDA-Public Use
  Company Number: US-BAYER-US-2007-032334

PATIENT
  Age: 46 Year
  Sex: Female
  Weight: 100 kg

DRUGS (6)
  1. MIRENA [Suspect]
     Indication: MENORRHAGIA
     Route: 015
     Dates: start: 20060818
  2. ZANTAC [Concomitant]
  3. PREDNISONE TAB [Concomitant]
  4. DOXYCYCLINE [Concomitant]
  5. OLUX-E-FOAM [Concomitant]
  6. METAPROPOL [Concomitant]

REACTIONS (4)
  - AMENORRHOEA [None]
  - METRORRHAGIA [None]
  - PROCEDURAL PAIN [None]
  - RASH PAPULAR [None]
